FAERS Safety Report 15235438 (Version 4)
Quarter: 2018Q3

REPORT INFORMATION
  Report Type: Spontaneous
  Country: US (occurrence: US)
  Receive Date: 20180803
  Receipt Date: 20180810
  Transmission Date: 20181010
  Serious: Yes (Other)
  Sender: FDA-Public Use
  Company Number: US-PFIZER INC-2018310970

PATIENT
  Age: 64 Year
  Sex: Female
  Weight: 95 kg

DRUGS (3)
  1. METFORMIN [Concomitant]
     Active Substance: METFORMIN HYDROCHLORIDE
     Indication: DIABETES MELLITUS
     Dosage: 100 MG, 2X/DAY
     Route: 048
  2. LYRICA [Suspect]
     Active Substance: PREGABALIN
     Indication: NEUROPATHY PERIPHERAL
     Dosage: 75 MG, ONCE A DAY
  3. LYRICA [Suspect]
     Active Substance: PREGABALIN
     Indication: PAIN IN EXTREMITY
     Dosage: 100 MG, DAILY
     Route: 048
     Dates: start: 201805

REACTIONS (10)
  - Abnormal behaviour [Unknown]
  - Agitation [Unknown]
  - Drug ineffective [Unknown]
  - Irritability [Unknown]
  - Delusion [Unknown]
  - Disturbance in attention [Unknown]
  - Insomnia [Unknown]
  - Condition aggravated [Unknown]
  - Amnesia [Unknown]
  - Cognitive disorder [Unknown]

NARRATIVE: CASE EVENT DATE: 201807
